FAERS Safety Report 9434765 (Version 1)
Quarter: 2013Q3

REPORT INFORMATION
  Report Type: Spontaneous
  Country: CN (occurrence: CN)
  Receive Date: 20130801
  Receipt Date: 20130801
  Transmission Date: 20140515
  Serious: Yes (Other)
  Sender: FDA-Public Use
  Company Number: CN-PFIZER INC-2013220450

PATIENT
  Age: 50 Year
  Sex: Male

DRUGS (3)
  1. PHARMORUBICIN [Suspect]
     Indication: CHEMOTHERAPY
     Dosage: 40 MG, 1X/DAY
     Route: 042
     Dates: start: 20120918, end: 20120920
  2. AZITHROMYCIN [Suspect]
     Indication: CHEMOTHERAPY
     Dosage: UNK
     Dates: start: 20120906, end: 20120920
  3. HOLOXAN [Suspect]
     Indication: CHEMOTHERAPY
     Dosage: UNK
     Dates: start: 20120906, end: 20120920

REACTIONS (2)
  - Off label use [Unknown]
  - Bone marrow failure [Recovering/Resolving]
